FAERS Safety Report 9725010 (Version 1)
Quarter: 2013Q4

REPORT INFORMATION
  Report Type: Spontaneous
  Country: FR (occurrence: FR)
  Receive Date: 20131203
  Receipt Date: 20131203
  Transmission Date: 20140711
  Serious: Yes (Hospitalization, Other)
  Sender: FDA-Public Use
  Company Number: FR-AMGEN-FRASP2013084958

PATIENT
  Age: 67 Year
  Sex: Female

DRUGS (12)
  1. ENBREL [Suspect]
     Indication: PRODUCT USED FOR UNKNOWN INDICATION
     Dosage: 25 MG, 2X/WEEK
     Route: 058
     Dates: start: 201309, end: 201310
  2. LANSOPRAZOLE [Interacting]
     Indication: PRODUCT USED FOR UNKNOWN INDICATION
     Dosage: 30 MG, 1X/DAY
     Route: 048
  3. BISOPROLOL [Concomitant]
     Dosage: UNK
  4. COAPROVEL [Concomitant]
     Dosage: UNK
  5. ALDACTAZINE [Concomitant]
     Dosage: UNK
  6. SIMVASTATIN [Concomitant]
     Dosage: UNK
  7. LOPERAMIDE [Concomitant]
     Dosage: UNK
  8. DOMPERIDONE [Concomitant]
     Dosage: UNK
  9. LEVOTHYROX [Concomitant]
     Dosage: UNK
  10. PAROXETINE [Concomitant]
     Dosage: UNK
  11. TOPALGIC                           /00599202/ [Concomitant]
     Dosage: UNK
  12. PARACETAMOL [Concomitant]
     Dosage: UNK

REACTIONS (8)
  - Pyrexia [Recovered/Resolved]
  - Respiratory failure [Recovered/Resolved]
  - Pleural effusion [Recovered/Resolved]
  - Drug interaction [Recovered/Resolved]
  - Urinary retention [Unknown]
  - Hyponatraemia [Unknown]
  - Bacterial sepsis [Recovered/Resolved]
  - Clostridium difficile colitis [Unknown]
